FAERS Safety Report 10350455 (Version 2)
Quarter: 2014Q3

REPORT INFORMATION
  Report Type: Report from Study
  Country: US (occurrence: US)
  Receive Date: 20140730
  Receipt Date: 20140730
  Transmission Date: 20150326
  Serious: No
  Sender: FDA-Public Use
  Company Number: US-ABBVIE-13P-163-1040151-00

PATIENT
  Age: 40 Year
  Sex: Female

DRUGS (4)
  1. NIASPAN [Suspect]
     Active Substance: NIACIN
     Route: 048
     Dates: start: 201303, end: 201307
  2. ASPIRIN. [Concomitant]
     Active Substance: ASPIRIN
     Indication: MULTIPLE DRUG THERAPY
     Dates: start: 201303
  3. CRESTOR [Concomitant]
     Active Substance: ROSUVASTATIN CALCIUM
     Indication: PRODUCT USED FOR UNKNOWN INDICATION
  4. NIASPAN [Suspect]
     Active Substance: NIACIN
     Indication: HIGH DENSITY LIPOPROTEIN DECREASED
     Route: 048
     Dates: start: 201307

REACTIONS (4)
  - Paraesthesia [Recovered/Resolved]
  - Burning sensation [Recovered/Resolved]
  - Unevaluable event [Recovered/Resolved]
  - Pruritus [Recovered/Resolved]

NARRATIVE: CASE EVENT DATE: 201303
